FAERS Safety Report 20119831 (Version 2)
Quarter: 2021Q4

REPORT INFORMATION
  Report Type: Spontaneous
  Country: CH (occurrence: CH)
  Receive Date: 20211126
  Receipt Date: 20211228
  Transmission Date: 20220303
  Serious: Yes (Other)
  Sender: FDA-Public Use
  Company Number: CH-NOVARTISPH-NVSC2021CH269902

PATIENT
  Age: 11 Year
  Sex: Male

DRUGS (1)
  1. RITALIN SR [Suspect]
     Active Substance: METHYLPHENIDATE HYDROCHLORIDE
     Indication: Attention deficit hyperactivity disorder
     Dosage: 25 MG, QD (15-10-0 MG)
     Route: 065
     Dates: start: 20211105, end: 20211119

REACTIONS (3)
  - Skin depigmentation [Recovering/Resolving]
  - Decreased appetite [Not Recovered/Not Resolved]
  - Insomnia [Not Recovered/Not Resolved]
